FAERS Safety Report 8421417-4 (Version None)
Quarter: 2012Q2

REPORT INFORMATION
  Report Type: 
  Country: None (occurrence: None)
  Receive Date: 20120601
  Receipt Date: 20120521
  Transmission Date: 20120825
  Serious: Yes (Hospitalization, Other)
  Sender: FDA-Public Use
  Company Number: 2012P1030316

PATIENT
  Sex: Female
  Weight: 52.1637 kg

DRUGS (12)
  1. ASPIRIN [Concomitant]
  2. PREDNISONE [Suspect]
     Indication: RHEUMATOID ARTHRITIS
     Dosage: 5 MG; QD; PO
     Route: 048
  3. METHOCARBAMOL [Concomitant]
  4. ONDANSETRON [Concomitant]
  5. FORTEO [Concomitant]
  6. DILTIAZEM [Concomitant]
  7. LEVOTHYROXINE SODIUM [Concomitant]
  8. ADVAIR DISKUS 100/50 [Concomitant]
  9. SPIRIVA [Concomitant]
  10. HYDROXYCHLOROQUINE SULFATE [Concomitant]
  11. OXYCONTIN [Concomitant]
  12. ERYTHROMYCIN OINTMENT [Concomitant]

REACTIONS (11)
  - UPPER LIMB FRACTURE [None]
  - VASCULAR FRAGILITY [None]
  - OEDEMA PERIPHERAL [None]
  - VEIN DISORDER [None]
  - COMA [None]
  - NOSOCOMIAL INFECTION [None]
  - CONTUSION [None]
  - CHRONIC OBSTRUCTIVE PULMONARY DISEASE [None]
  - URINARY TRACT INFECTION [None]
  - SKIN ATROPHY [None]
  - SEPSIS [None]
